FAERS Safety Report 5027205-3 (Version None)
Quarter: 2006Q2

REPORT INFORMATION
  Report Type: 
  Country: None (occurrence: None)
  Receive Date: 20060501
  Receipt Date: 20051227
  Transmission Date: 20061013
  Serious: No
  Sender: FDA-Public Use
  Company Number: 2005PV006311

PATIENT
  Age: 71 Year
  Sex: Male
  Weight: 124.7392 kg

DRUGS (7)
  1. SYMLIN [Suspect]
     Indication: DIABETES MELLITUS NON-INSULIN-DEPENDENT
     Dosage: 60 MCG; BID; SC
     Route: 058
     Dates: start: 20051206
  2. HUMULIN [Concomitant]
  3. HUMALOG [Concomitant]
  4. ASACOL [Concomitant]
  5. PREDNISONE TAB [Concomitant]
  6. IMODIUM ^JANSEEN^ [Concomitant]
  7. OPIUM DROPS [Concomitant]

REACTIONS (9)
  - BLOOD GLUCOSE DECREASED [None]
  - DECREASED APPETITE [None]
  - DIARRHOEA [None]
  - DYSPEPSIA [None]
  - FLATULENCE [None]
  - FREQUENT BOWEL MOVEMENTS [None]
  - GASTROINTESTINAL DISORDER [None]
  - GASTROINTESTINAL PAIN [None]
  - NERVOUSNESS [None]
